FAERS Safety Report 8856158 (Version 2)
Quarter: 2013Q4

REPORT INFORMATION
  Report Type: Spontaneous
  Country: US (occurrence: US)
  Receive Date: 20121023
  Receipt Date: 20131127
  Transmission Date: 20140711
  Serious: Yes (Other)
  Sender: FDA-Public Use
  Company Number: US-AMGEN-USASP2012057525

PATIENT
  Age: 30 Year
  Sex: Male
  Weight: 88.43 kg

DRUGS (6)
  1. ENBREL [Suspect]
     Indication: PSORIASIS
     Dosage: 50 MG, QWK
     Route: 058
     Dates: start: 2008
  2. ENBREL [Suspect]
     Indication: PSORIATIC ARTHROPATHY
  3. VERAMYST [Concomitant]
     Dosage: 27.5 MUG, UNK
  4. PROZAC [Concomitant]
     Dosage: 10 MG, UNK
  5. MULTIVITAMINS, PLAIN [Concomitant]
     Dosage: UNK
  6. CLARITIN                           /00413701/ [Concomitant]
     Dosage: UNK

REACTIONS (2)
  - Sinus disorder [Not Recovered/Not Resolved]
  - Sinusitis [Not Recovered/Not Resolved]
